FAERS Safety Report 20962504 (Version 1)
Quarter: 2022Q2

REPORT INFORMATION
  Report Type: Spontaneous
  Country: CA (occurrence: CA)
  Receive Date: 20220615
  Receipt Date: 20220615
  Transmission Date: 20220721
  Serious: Yes (Hospitalization, Other)
  Sender: FDA-Public Use
  Company Number: CA-GLAXOSMITHKLINE-CA2022AMR092313

PATIENT

DRUGS (2)
  1. SUMATRIPTAN SUCCINATE [Suspect]
     Active Substance: SUMATRIPTAN SUCCINATE
     Indication: Migraine
     Dosage: 100 MG, QD ,1 EVERY 1 DAY
     Route: 048
  2. CLOBETASOL PROPIONATE [Concomitant]
     Active Substance: CLOBETASOL PROPIONATE
     Indication: Product used for unknown indication
     Dosage: UNK

REACTIONS (8)
  - Arteriospasm coronary [Unknown]
  - Dizziness [Unknown]
  - Electrocardiogram change [Unknown]
  - Hypoaesthesia [Unknown]
  - Palpitations [Unknown]
  - Paraesthesia [Unknown]
  - Presyncope [Unknown]
  - Troponin increased [Unknown]
